FAERS Safety Report 10048587 (Version 1)
Quarter: 2014Q1

REPORT INFORMATION
  Report Type: Spontaneous
  Country: US (occurrence: None)
  Receive Date: 20140327
  Receipt Date: 20140327
  Transmission Date: 20141002
  Serious: Yes (Death, Hospitalization, Other)
  Sender: FDA-Public Use
  Company Number: AUR-APL-2014-03842

PATIENT
  Age: 55 Year
  Sex: Male

DRUGS (4)
  1. ALPRAZOLAM (ALPRAZOLAM) [Suspect]
     Indication: PRODUCT USED FOR UNKNOWN INDICATION
  2. ESCITALOPRAM (ESCITALOPRAM) [Suspect]
     Indication: PRODUCT USED FOR UNKNOWN INDICATION
  3. DULOXETINE (DULOXETINE) (DULOXETINE) [Suspect]
     Indication: PRODUCT USED FOR UNKNOWN INDICATION
  4. VILAZODONE [Suspect]
     Indication: PRODUCT USED FOR UNKNOWN INDICATION
     Route: 048

REACTIONS (18)
  - Completed suicide [None]
  - Unresponsive to stimuli [None]
  - Blood pressure decreased [None]
  - Heart rate decreased [None]
  - Atrial flutter [None]
  - Respiratory rate decreased [None]
  - Nystagmus [None]
  - Tremor [None]
  - Muscle rigidity [None]
  - Hyperhidrosis [None]
  - Oxygen saturation decreased [None]
  - Blood chloride decreased [None]
  - Blood potassium decreased [None]
  - Cardio-respiratory arrest [None]
  - Haematemesis [None]
  - Overdose [None]
  - Pulmonary oedema [None]
  - Toxicity to various agents [None]
